FAERS Safety Report 13690392 (Version 1)
Quarter: 2017Q2

REPORT INFORMATION
  Report Type: Spontaneous
  Country: US (occurrence: US)
  Receive Date: 20170626
  Receipt Date: 20170626
  Transmission Date: 20170830
  Serious: No
  Sender: FDA-Public Use
  Company Number: US-DSJP-DSU-2016-123410

PATIENT
  Sex: Female

DRUGS (1)
  1. WELCHOL [Suspect]
     Active Substance: COLESEVELAM HYDROCHLORIDE
     Indication: BLOOD CHOLESTEROL INCREASED
     Dosage: 1875 MG, BID
     Route: 048
     Dates: start: 2014, end: 20160627

REACTIONS (5)
  - Dizziness [Unknown]
  - Rhinitis [Unknown]
  - Headache [Unknown]
  - Ear pain [Unknown]
  - Neck pain [Unknown]

NARRATIVE: CASE EVENT DATE: 201606
